FAERS Safety Report 8207797-3 (Version None)
Quarter: 2012Q1

REPORT INFORMATION
  Report Type: 
  Country: None (occurrence: None)
  Receive Date: 20120314
  Receipt Date: 20120220
  Transmission Date: 20120608
  Serious: Yes (Hospitalization)
  Sender: FDA-Public Use
  Company Number: SE-TEVA-318544ISR

PATIENT
  Age: 32 Year
  Sex: Male

DRUGS (6)
  1. NICOTINE [Concomitant]
  2. HALDOL [Concomitant]
     Dosage: 4 MILLIGRAM;
  3. MODAFANIL [Suspect]
     Dosage: INCREASING DOSAGES OVER 3 WEEKS, UP TO 300 MG
     Route: 048
  4. PROPAVAN [Concomitant]
     Dosage: 50 MILLIGRAM; AT NIGHT
  5. MODAFANIL [Suspect]
     Route: 048
     Dates: start: 20111201, end: 20111226
  6. INDERAL [Concomitant]
     Dosage: 120 MILLIGRAM;

REACTIONS (5)
  - WEIGHT DECREASED [None]
  - TYPE 2 DIABETES MELLITUS [None]
  - KETOACIDOSIS [None]
  - NAUSEA [None]
  - HYPERGLYCAEMIA [None]
